FAERS Safety Report 12969432 (Version 2)
Quarter: 2016Q4

REPORT INFORMATION
  Report Type: Other
  Country: US (occurrence: US)
  Receive Date: 20161123
  Receipt Date: 20161219
  Transmission Date: 20170207
  Serious: Yes (Hospitalization, Other)
  Sender: FDA-Public Use
  Company Number: US-BELCHER PHARMACEUTICALS, LLC-2016VTS00286

PATIENT
  Age: 31 Year
  Sex: Female
  Weight: 56.69 kg

DRUGS (16)
  1. BEANO PO [Concomitant]
     Dosage: 1 TABLETS, UP TO 1X/DAY
     Route: 048
  2. TRAZODONE [Concomitant]
     Active Substance: TRAZODONE HYDROCHLORIDE
     Dosage: 100 MG, 1X/DAY
  3. HYOSCYAMINE SULFATE SL [Suspect]
     Active Substance: HYOSCYAMINE SULFATE
     Indication: ABDOMINAL PAIN
  4. TRAMADOL. [Concomitant]
     Active Substance: TRAMADOL
     Dosage: 50 MG, UP TO 4X/DAY
  5. BENTYL [Concomitant]
     Active Substance: DICYCLOMINE HYDROCHLORIDE
     Dosage: 2 CAPSULES, UP TO 4X/DAY
     Route: 048
  6. ZOFRAN-ODT [Concomitant]
     Dosage: 8 MG, UP TO 3X/DAY
  7. MIRALAX [Concomitant]
     Active Substance: POLYETHYLENE GLYCOL 3350
     Dosage: 1 DOSAGE UNITS, 1X/DAY
  8. HYOSCYAMINE SULFATE SL [Suspect]
     Active Substance: HYOSCYAMINE SULFATE
     Indication: ABDOMINAL RIGIDITY
     Dosage: 0.125 MG, 3X/DAY AS NEEDED
     Route: 060
  9. HYOSCYAMINE SULFATE SL [Suspect]
     Active Substance: HYOSCYAMINE SULFATE
     Indication: GASTROINTESTINAL PAIN
     Dosage: 0.125 MG, AS NEEDED
     Route: 060
     Dates: start: 2011
  10. IBUPROFEN. [Concomitant]
     Active Substance: IBUPROFEN
     Dosage: 1 TABLETS, UP TO 3X/DAY
  11. VALIUM [Concomitant]
     Active Substance: DIAZEPAM
     Dosage: 5 MG, 2X/DAY
     Route: 048
  12. VALACYCLOVIR [Concomitant]
     Active Substance: VALACYCLOVIR HYDROCHLORIDE
     Dosage: 500 MG, AS NEEDED
  13. TYLENOL [Concomitant]
     Active Substance: ACETAMINOPHEN
     Dosage: 650 MG, UP TO 6X/DAY
  14. MULTIVITAMIN [Concomitant]
     Active Substance: VITAMINS
     Dosage: 1 TABLETS, 1X/DAY
  15. VALACYCLOVIR [Concomitant]
     Active Substance: VALACYCLOVIR HYDROCHLORIDE
     Dosage: UNK, AS NEEDED
  16. ZOLOFT [Concomitant]
     Active Substance: SERTRALINE HYDROCHLORIDE
     Dosage: 25 MG, 1X/DAY

REACTIONS (30)
  - Feeling abnormal [Recovered/Resolved]
  - Disorientation [Recovered/Resolved]
  - Giardiasis [Unknown]
  - Confusional state [Recovered/Resolved]
  - Blood urea decreased [Unknown]
  - Dry mouth [Recovered/Resolved]
  - Nausea [Recovered/Resolved]
  - Laparoscopy [Recovered/Resolved]
  - Vision blurred [Recovered/Resolved]
  - Dizziness [Recovered/Resolved]
  - Choking [Recovered/Resolved]
  - Body temperature fluctuation [Recovered/Resolved]
  - Asthenia [Recovering/Resolving]
  - Somnolence [Recovering/Resolving]
  - Vertigo [Recovering/Resolving]
  - Sinus tachycardia [Recovering/Resolving]
  - Intestinal malrotation repair [Recovered/Resolved]
  - Restlessness [Recovered/Resolved]
  - Hypersensitivity [Unknown]
  - Small intestinal obstruction [Not Recovered/Not Resolved]
  - Micturition urgency [Recovered/Resolved]
  - Dehydration [Recovering/Resolving]
  - Feeding tube user [Recovered/Resolved]
  - Oxygen saturation decreased [Unknown]
  - Gait disturbance [Recovering/Resolving]
  - Vomiting [Recovered/Resolved]
  - Visual impairment [Recovered/Resolved]
  - Mental status changes [Recovered/Resolved]
  - Amnesia [Recovering/Resolving]
  - Dysarthria [Recovering/Resolving]

NARRATIVE: CASE EVENT DATE: 2011
